FAERS Safety Report 6760047-7 (Version None)
Quarter: 2010Q2

REPORT INFORMATION
  Report Type: 
  Country: None (occurrence: None)
  Receive Date: 20100608
  Receipt Date: 20100527
  Transmission Date: 20101027
  Serious: Yes (Hospitalization)
  Sender: FDA-Public Use
  Company Number: ES-ELI_LILLY_AND_COMPANY-ES201005007863

PATIENT
  Sex: Female
  Weight: 65 kg

DRUGS (4)
  1. FORTEO [Suspect]
     Indication: OSTEOPOROSIS
     Dosage: 20 UG, DAILY (1/D)
     Route: 058
     Dates: start: 20100317, end: 20100505
  2. ACOVIL [Concomitant]
     Indication: HYPERTENSION
     Dosage: UNK, DAILY (1/D)
     Route: 048
  3. SEGURIL [Concomitant]
     Indication: HYPERTENSION
     Dosage: UNK, DAILY (1/D)
     Route: 048
  4. DACORTIN [Concomitant]
     Dosage: UNK, 3/W
     Route: 048

REACTIONS (3)
  - ATRIAL FIBRILLATION [None]
  - DECREASED APPETITE [None]
  - FATIGUE [None]
